FAERS Safety Report 7593816-4 (Version None)
Quarter: 2011Q3

REPORT INFORMATION
  Report Type: 
  Country: None (occurrence: None)
  Receive Date: 20110706
  Receipt Date: 20110607
  Transmission Date: 20111222
  Serious: Yes (Hospitalization, Other)
  Sender: FDA-Public Use
  Company Number: JP-UCBSA-033840

PATIENT
  Sex: Female

DRUGS (4)
  1. XYZAL [Suspect]
     Indication: RHINITIS ALLERGIC
     Route: 048
     Dates: start: 20110314, end: 20110321
  2. LENDORMIN D [Concomitant]
     Indication: INSOMNIA
     Route: 048
     Dates: start: 20100811
  3. ROZEREM [Concomitant]
     Indication: INSOMNIA
     Route: 048
     Dates: start: 20100811
  4. MICAMLO [Concomitant]
     Indication: HYPERTENSION
     Route: 048
     Dates: start: 20110202

REACTIONS (2)
  - PYELONEPHRITIS [None]
  - LIVER DISORDER [None]
